FAERS Safety Report 4839156-5 (Version None)
Quarter: 2005Q4

REPORT INFORMATION
  Report Type: 
  Country: None (occurrence: None)
  Receive Date: 20051128
  Receipt Date: 20051128
  Transmission Date: 20060501
  Serious: Yes (Other)
  Sender: FDA-Public Use
  Company Number: None

PATIENT
  Sex: Male
  Weight: 67.9 kg

DRUGS (2)
  1. TARCEVA [Suspect]
     Indication: CHEMOTHERAPY
     Dosage: 150 MG TABLET   ONCE DAILY  PO
     Route: 048
     Dates: start: 20051117, end: 20051122
  2. TARCEVA [Suspect]
     Indication: LUNG NEOPLASM MALIGNANT
     Dosage: 150 MG TABLET   ONCE DAILY  PO
     Route: 048
     Dates: start: 20051117, end: 20051122

REACTIONS (3)
  - DIARRHOEA [None]
  - DRUG INTOLERANCE [None]
  - SKIN IRRITATION [None]
